FAERS Safety Report 5581730-5 (Version None)
Quarter: 2008Q1

REPORT INFORMATION
  Report Type: 
  Country: None (occurrence: None)
  Receive Date: 20080104
  Receipt Date: 20071227
  Transmission Date: 20080703
  Serious: Yes (Other)
  Sender: FDA-Public Use
  Company Number: US-JNJFOC-20071107432

PATIENT
  Age: 21 Year
  Sex: Male
  Weight: 74.39 kg

DRUGS (1)
  1. RISPERDAL [Suspect]
     Indication: SCHIZOPHRENIA
     Route: 048

REACTIONS (4)
  - DYSPHAGIA [None]
  - DYSPNOEA [None]
  - SPASMODIC DYSPHONIA [None]
  - VOCAL CORD INFLAMMATION [None]
